FAERS Safety Report 10303373 (Version 3)
Quarter: 2014Q3

REPORT INFORMATION
  Report Type: Spontaneous
  Country: US (occurrence: US)
  Receive Date: 20140714
  Receipt Date: 20140915
  Transmission Date: 20150326
  Serious: No
  Sender: FDA-Public Use
  Company Number: US-ASTELLAS-2014US007761

PATIENT
  Sex: Female

DRUGS (4)
  1. OTHER UNSPECIFIED BLADDER CONTROL PILLS [Suspect]
     Active Substance: UNSPECIFIED INGREDIENT
     Indication: POLLAKIURIA
     Dosage: UNK UNK, UNKNOWN FREQ.
     Route: 065
  2. PERCOCET [Concomitant]
     Active Substance: ACETAMINOPHEN\OXYCODONE HYDROCHLORIDE
     Indication: PAIN
     Dosage: 10.325 MG, EVERY 4 HOURS
     Route: 048
  3. MORPHINE  SULER [Concomitant]
     Indication: PAIN
     Route: 048
  4. MYRBETRIQ [Suspect]
     Active Substance: MIRABEGRON
     Indication: NOCTURIA
     Route: 048
     Dates: start: 20140627, end: 20140629

REACTIONS (1)
  - Drug ineffective for unapproved indication [Unknown]
